FAERS Safety Report 8563632-5 (Version None)
Quarter: 2012Q3

REPORT INFORMATION
  Report Type: 
  Country: None (occurrence: None)
  Receive Date: 20120803
  Receipt Date: 20120720
  Transmission Date: 20120928
  Serious: Yes (Hospitalization)
  Sender: FDA-Public Use
  Company Number: DE-BIOGENIDEC-2012BI025031

PATIENT
  Age: 29 Year
  Sex: Male

DRUGS (2)
  1. VITAMIN D [Concomitant]
     Dates: start: 20091001
  2. TYSABRI [Suspect]
     Indication: RELAPSING-REMITTING MULTIPLE SCLEROSIS
     Route: 042
     Dates: start: 20091001

REACTIONS (1)
  - HYPERTHYROIDISM [None]
